FAERS Safety Report 24289976 (Version 1)
Quarter: 2024Q3

REPORT INFORMATION
  Report Type: Spontaneous
  Country: US (occurrence: US)
  Receive Date: 20240906
  Receipt Date: 20240906
  Transmission Date: 20241017
  Serious: No
  Sender: ABBVIE
  Company Number: US-ABBVIE-5906990

PATIENT
  Age: 60 Year
  Sex: Female

DRUGS (2)
  1. BOTOX [Suspect]
     Active Substance: ONABOTULINUMTOXINA
     Indication: Migraine
     Dosage: TIME INTERVAL: AS NECESSARY: BOTOX FREQUENCY WAS EVERY THREE MONTHS.?FORM STRENGTH-200 UNITS
     Route: 065
     Dates: start: 20240320, end: 20240320
  2. BOTOX [Suspect]
     Active Substance: ONABOTULINUMTOXINA
     Indication: Migraine
     Dosage: TIME INTERVAL: AS NECESSARY: BOTOX FREQUENCY WAS EVERY THREE MONTHS.?FORM STRENGTH-200 UNITS
     Route: 065
     Dates: start: 20240619, end: 20240619

REACTIONS (1)
  - Cellulitis [Unknown]

NARRATIVE: CASE EVENT DATE: 20240320
